FAERS Safety Report 8255497-6 (Version None)
Quarter: 2012Q1

REPORT INFORMATION
  Report Type: 
  Country: None (occurrence: None)
  Receive Date: 20120322
  Receipt Date: 20111130
  Transmission Date: 20120608
  Serious: Yes (Other)
  Sender: FDA-Public Use
  Company Number: UTC-012958

PATIENT
  Age: 46 Year
  Sex: Male
  Weight: 111.4 kg

DRUGS (1)
  1. TYVASO [Suspect]
     Indication: PULMONARY ARTERIAL HYPERTENSION
     Dosage: 288; 18-54 MCG (72 MCG, 4 IN 1 D)INHALATION
     Dates: start: 20110727

REACTIONS (7)
  - HEPATIC NEOPLASM MALIGNANT [None]
  - NAUSEA [None]
  - HEADACHE [None]
  - DRY THROAT [None]
  - THROAT IRRITATION [None]
  - COUGH [None]
  - DYSPNOEA [None]
